FAERS Safety Report 25998780 (Version 2)
Quarter: 2025Q4

REPORT INFORMATION
  Report Type: Spontaneous
  Country: IN (occurrence: IN)
  Receive Date: 20251105
  Receipt Date: 20251119
  Transmission Date: 20260117
  Serious: Yes (Hospitalization, Other)
  Sender: ALKEM
  Company Number: None

PATIENT
  Age: 42 Year
  Sex: Female

DRUGS (2)
  1. TACROLIMUS [Suspect]
     Active Substance: TACROLIMUS
     Indication: Immunosuppressant drug therapy
     Dosage: UNK
     Route: 065
  2. METHYLPREDNISOLONE [Suspect]
     Active Substance: METHYLPREDNISOLONE
     Indication: Multiple sclerosis
     Dosage: 1 GRAM (TOTAL DOSE)
     Route: 042

REACTIONS (5)
  - Complications of transplanted kidney [Recovered/Resolved]
  - Hypertension [Recovered/Resolved]
  - Encephalitis [Unknown]
  - Transplant dysfunction [Unknown]
  - Toxicity to various agents [Unknown]
